FAERS Safety Report 21990227 (Version 1)
Quarter: 2023Q1

REPORT INFORMATION
  Report Type: Spontaneous
  Country: US (occurrence: US)
  Receive Date: 20230214
  Receipt Date: 20230214
  Transmission Date: 20230418
  Serious: No
  Sender: FDA-Public Use
  Company Number: US-PFIZER INC-202300060493

PATIENT
  Age: 52 Year
  Sex: Female
  Weight: 72.57 kg

DRUGS (1)
  1. PAXLOVID [Suspect]
     Active Substance: NIRMATRELVIR\RITONAVIR
     Indication: COVID-19 treatment
     Dosage: [PF-07321332 300 MG]/[RITONAVIR 100 MG]; 2X/DAY
     Dates: start: 20230201, end: 20230206

REACTIONS (19)
  - Dyspnoea [Unknown]
  - Palpitations [Recovering/Resolving]
  - Off label use [Unknown]
  - Throat irritation [Recovering/Resolving]
  - Ear pruritus [Recovering/Resolving]
  - Oral pruritus [Recovering/Resolving]
  - Upper-airway cough syndrome [Unknown]
  - Dehydration [Unknown]
  - Lip exfoliation [Recovering/Resolving]
  - Sinus disorder [Recovering/Resolving]
  - Dry throat [Recovering/Resolving]
  - Pharyngeal swelling [Unknown]
  - Feeling hot [Unknown]
  - Cough [Unknown]
  - Oropharyngeal spasm [Unknown]
  - Hyperventilation [Unknown]
  - Malaise [Unknown]
  - Condition aggravated [Unknown]
  - Feeling abnormal [Unknown]

NARRATIVE: CASE EVENT DATE: 20230201
